FAERS Safety Report 5872938-X (Version None)
Quarter: 2008Q3

REPORT INFORMATION
  Report Type: 
  Country: None (occurrence: None)
  Receive Date: 20080905
  Receipt Date: 20080825
  Transmission Date: 20090109
  Serious: Yes (Other)
  Sender: FDA-Public Use
  Company Number: US-PFIZER INC-2008071545

PATIENT
  Sex: Female
  Weight: 90.7 kg

DRUGS (10)
  1. CHANTIX [Suspect]
     Indication: SMOKING CESSATION THERAPY
     Route: 048
     Dates: start: 20080101, end: 20080101
  2. DILTIAZEM HCL [Concomitant]
  3. VALSARTAN [Concomitant]
  4. NEXIUM [Concomitant]
  5. PAROXETINE HCL [Concomitant]
  6. ALDACTAZIDE-A [Concomitant]
  7. PRAVASTATIN [Concomitant]
  8. WARFARIN SODIUM [Concomitant]
  9. CELEBREX [Concomitant]
  10. GLUCOSAMINE [Concomitant]

REACTIONS (5)
  - ANGER [None]
  - DEPRESSED MOOD [None]
  - FEELING OF DESPAIR [None]
  - HOSTILITY [None]
  - SELF-INJURIOUS IDEATION [None]
